FAERS Safety Report 14536056 (Version 3)
Quarter: 2018Q2

REPORT INFORMATION
  Report Type: Spontaneous
  Country: CA (occurrence: CA)
  Receive Date: 20180215
  Receipt Date: 20180417
  Transmission Date: 20180711
  Serious: Yes (Other)
  Sender: FDA-Public Use
  Company Number: CA-PFIZER INC-2017444731

PATIENT
  Age: 54 Year
  Sex: Female

DRUGS (5)
  1. PLAQUENIL [Concomitant]
     Active Substance: HYDROXYCHLOROQUINE SULFATE
     Indication: RHEUMATOID ARTHRITIS
     Dosage: 200 MG, 2X/DAY
     Dates: start: 2006
  2. XELJANZ [Suspect]
     Active Substance: TOFACITINIB CITRATE
     Indication: RHEUMATOID ARTHRITIS
     Dosage: 5 MG, 2X/DAY
     Route: 048
     Dates: start: 20170929, end: 201711
  3. XELJANZ [Suspect]
     Active Substance: TOFACITINIB CITRATE
     Dosage: 5 MG, 2X/DAY
     Route: 048
     Dates: start: 2018, end: 20180404
  4. XELJANZ [Suspect]
     Active Substance: TOFACITINIB CITRATE
     Dosage: 5 MG, 2X/DAY
     Route: 048
     Dates: end: 20180201
  5. ARAVA [Concomitant]
     Active Substance: LEFLUNOMIDE
     Indication: RHEUMATOID ARTHRITIS
     Dosage: 10 MG, 1X/DAY
     Dates: start: 2015

REACTIONS (13)
  - Condition aggravated [Not Recovered/Not Resolved]
  - Rash [Unknown]
  - Swelling face [Unknown]
  - Neck mass [Unknown]
  - Toothache [Unknown]
  - Osteomyelitis [Unknown]
  - Influenza [Not Recovered/Not Resolved]
  - Pain in jaw [Unknown]
  - Infection [Unknown]
  - Ear infection bacterial [Unknown]
  - Erythema [Unknown]
  - Inflammation [Unknown]
  - Pruritus [Unknown]

NARRATIVE: CASE EVENT DATE: 20171021
